FAERS Safety Report 5289155-7 (Version None)
Quarter: 2007Q1

REPORT INFORMATION
  Report Type: 
  Country: None (occurrence: None)
  Receive Date: 20070124
  Receipt Date: 20060810
  Transmission Date: 20070707
  Serious: Yes (Hospitalization)
  Sender: FDA-Public Use
  Company Number: E2020-00341-SPO-US

PATIENT
  Age: 45 Year
  Sex: Female
  Weight: 93.1 kg

DRUGS (2)
  1. ARICEPT [Suspect]
     Indication: MULTIPLE SCLEROSIS
     Dosage: 5 MG, 1 IN 1 D, ORAL
     Route: 048
     Dates: start: 20060101
  2. METFORMIN HCL [Concomitant]

REACTIONS (1)
  - GRAND MAL CONVULSION [None]
